FAERS Safety Report 4666664-2 (Version None)
Quarter: 2005Q2

REPORT INFORMATION
  Report Type: 
  Country: None (occurrence: None)
  Receive Date: 20050519
  Receipt Date: 20050118
  Transmission Date: 20051028
  Serious: Yes (Other)
  Sender: FDA-Public Use
  Company Number: PHBS2005CH01040

PATIENT
  Age: 48 Year
  Sex: Male

DRUGS (6)
  1. AREDIA [Suspect]
     Indication: MULTIPLE MYELOMA
     Dosage: UNK, QMO
     Dates: start: 19990101, end: 20030801
  2. ZOMETA [Suspect]
     Indication: MULTIPLE MYELOMA
     Dosage: 4 MG, QMO
     Dates: start: 20030805, end: 20041104
  3. DEXAMETHASONE [Suspect]
     Indication: MULTIPLE MYELOMA
     Dosage: 40 MG FOR 4 DAYS EVERY 4 WEEKS
     Route: 065
     Dates: start: 20031023
  4. THALIDOMIDE [Concomitant]
     Dosage: 300 MG/D
     Dates: start: 20021017
  5. DIPYRONE TAB [Concomitant]
     Dosage: 1000 MG/D
     Dates: start: 19960508
  6. FRAGMIN [Concomitant]
     Dosage: 2500 IU/D FOR 7 DAYS/MONTH
     Route: 058
     Dates: start: 20031023

REACTIONS (4)
  - ORAL SURGERY [None]
  - OSTEONECROSIS [None]
  - TOOTH EXTRACTION [None]
  - WOUND DEBRIDEMENT [None]
